FAERS Safety Report 16702826 (Version 1)
Quarter: 2019Q3

REPORT INFORMATION
  Report Type: Report from Study
  Country: None (occurrence: RO)
  Receive Date: 20190814
  Receipt Date: 20190814
  Transmission Date: 20191004
  Serious: Yes (Death, Life-Threatening, Disabling, Other)
  Sender: FDA-Public Use
  Company Number: RO-ABBVIE-19P-135-2887421-00

PATIENT
  Age: 72 Year
  Sex: Male
  Weight: 65 kg

DRUGS (21)
  1. DUODOPA [Suspect]
     Active Substance: CARBIDOPA\LEVODOPA
     Route: 050
  2. MADOPAR HBS [Concomitant]
     Active Substance: BENSERAZIDE HYDROCHLORIDE\LEVODOPA
     Indication: PARKINSON^S DISEASE
     Route: 048
     Dates: start: 20170606
  3. NEXIUM [Concomitant]
     Active Substance: ESOMEPRAZOLE MAGNESIUM
     Indication: GASTRITIS PROPHYLAXIS
     Route: 048
     Dates: start: 20170606
  4. PLAVIX [Concomitant]
     Active Substance: CLOPIDOGREL BISULFATE
     Indication: CEREBROVASCULAR ACCIDENT PROPHYLAXIS
     Route: 048
     Dates: start: 2018
  5. DUODOPA [Suspect]
     Active Substance: CARBIDOPA\LEVODOPA
     Indication: PARKINSON^S DISEASE
     Dosage: TITRATION MD:10.5ML; CD: 5.7ML/H; ED: 3ML
     Route: 050
     Dates: start: 20170525, end: 20170529
  6. INSUMAN BASAL [Concomitant]
     Active Substance: INSULIN HUMAN
     Indication: DIABETES MELLITUS
     Route: 058
     Dates: start: 2007
  7. NEUPRO [Concomitant]
     Active Substance: ROTIGOTINE
     Indication: PARKINSON^S DISEASE
     Route: 062
     Dates: start: 2015
  8. VENTOLIN [Concomitant]
     Active Substance: ALBUTEROL SULFATE
     Indication: ASTHMA
     Dosage: DOSE: 5/10 MG/ML
     Route: 055
     Dates: start: 20190205
  9. DIUREX [Concomitant]
     Indication: HYPERTENSION
     Dosage: DOSE: 20/50 MG
     Route: 048
     Dates: start: 2013
  10. DUODOPA [Suspect]
     Active Substance: CARBIDOPA\LEVODOPA
     Route: 050
     Dates: start: 20190530, end: 20190812
  11. LEPONEX [Concomitant]
     Active Substance: CLOZAPINE
     Indication: SLEEP DISORDER
  12. FOSTER [Concomitant]
     Active Substance: BECLOMETHASONE\FORMOTEROL
     Indication: ASTHMA
     Dosage: DOSE: 100/6 UG
     Route: 055
     Dates: start: 20190205
  13. VIREGYT [Concomitant]
     Indication: PARKINSON^S DISEASE
     Route: 048
     Dates: start: 20190205
  14. NEBILET [Concomitant]
     Active Substance: NEBIVOLOL
     Indication: HYPERTENSION
     Route: 048
     Dates: start: 2010
  15. CRESTOR [Concomitant]
     Active Substance: ROSUVASTATIN CALCIUM
     Indication: HYPERCHOLESTEROLAEMIA
     Route: 048
     Dates: start: 2018
  16. SIOFOR [Concomitant]
     Active Substance: METFORMIN HYDROCHLORIDE
     Indication: DIABETES MELLITUS
     Route: 048
     Dates: start: 200702, end: 2018
  17. SIOFOR [Concomitant]
     Active Substance: METFORMIN HYDROCHLORIDE
     Route: 048
     Dates: start: 2018
  18. LEPONEX [Concomitant]
     Active Substance: CLOZAPINE
     Indication: PARKINSON^S DISEASE
     Route: 048
     Dates: start: 2015
  19. EXELON [Concomitant]
     Active Substance: RIVASTIGMINE TARTRATE
     Indication: VASCULAR DEMENTIA
     Route: 062
     Dates: start: 20190207
  20. SERMION [Concomitant]
     Active Substance: NICERGOLINE
     Indication: CEREBROVASCULAR ACCIDENT
     Route: 048
     Dates: start: 20190205
  21. TARKA [Concomitant]
     Active Substance: TRANDOLAPRIL\VERAPAMIL HYDROCHLORIDE
     Indication: HYPERTENSION
     Dosage: DOSE: 180/2 MG
     Route: 048
     Dates: start: 2014

REACTIONS (1)
  - Cardio-respiratory arrest [Fatal]

NARRATIVE: CASE EVENT DATE: 20190812
